FAERS Safety Report 5263625-X (Version None)
Quarter: 2007Q1

REPORT INFORMATION
  Report Type: 
  Country: None (occurrence: None)
  Receive Date: 20070313
  Receipt Date: 20070302
  Transmission Date: 20070707
  Serious: Yes (Hospitalization, Other)
  Sender: FDA-Public Use
  Company Number: CA-JNJFOC-20060500943

PATIENT
  Sex: Female

DRUGS (29)
  1. REMICADE [Suspect]
     Route: 042
  2. REMICADE [Suspect]
     Route: 042
  3. REMICADE [Suspect]
     Route: 042
  4. REMICADE [Suspect]
     Route: 042
  5. REMICADE [Suspect]
     Route: 042
  6. REMICADE [Suspect]
     Route: 042
  7. REMICADE [Suspect]
     Route: 042
  8. REMICADE [Suspect]
     Route: 042
  9. REMICADE [Suspect]
     Route: 042
  10. REMICADE [Suspect]
     Dosage: 2 INFUSIONS ON UNKNOWN DATES
     Route: 042
  11. REMICADE [Suspect]
     Route: 042
  12. REMICADE [Suspect]
     Route: 042
  13. REMICADE [Suspect]
     Route: 042
  14. REMICADE [Suspect]
     Route: 042
  15. REMICADE [Suspect]
     Route: 042
  16. REMICADE [Suspect]
     Route: 042
  17. REMICADE [Suspect]
     Route: 042
  18. REMICADE [Suspect]
     Route: 042
  19. REMICADE [Suspect]
     Route: 042
  20. REMICADE [Suspect]
     Indication: CROHN'S DISEASE
     Dosage: 3 INFUSIONS ON UNKNOWN DATES
     Route: 042
  21. PURINETHOL [Concomitant]
  22. SYNTHROID [Concomitant]
  23. PROZAC [Concomitant]
  24. NEXIUM [Concomitant]
  25. PROCHLORPERAZINE [Concomitant]
     Indication: NAUSEA
  26. DICLECTIN [Concomitant]
     Indication: NAUSEA
  27. FIORINAL [Concomitant]
     Indication: MIGRAINE
     Dosage: 330/40/50MG PRN SINCE ABOUT 1984-1985
  28. STATEX [Concomitant]
     Indication: PAIN
  29. DURAGESIC-100 [Concomitant]
     Indication: PAIN

REACTIONS (6)
  - BLOOD MAGNESIUM DECREASED [None]
  - BLOOD POTASSIUM DECREASED [None]
  - GAIT DISTURBANCE [None]
  - OSTEOPOROSIS [None]
  - PAIN [None]
  - SWELLING [None]
